FAERS Safety Report 11406873 (Version 3)
Quarter: 2015Q4

REPORT INFORMATION
  Report Type: Spontaneous
  Country: FR (occurrence: FR)
  Receive Date: 20150821
  Receipt Date: 20151002
  Transmission Date: 20160304
  Serious: Yes (Death, Hospitalization)
  Sender: FDA-Public Use
  Company Number: FR-PFIZER INC-2015268572

PATIENT
  Age: 77 Year
  Sex: Female

DRUGS (6)
  1. KETOPROFENE /00032001/ [Suspect]
     Active Substance: KETOPROFEN
     Indication: ARTHRALGIA
     Dosage: 200 MG, 1X/DAY
     Route: 048
     Dates: start: 20150602, end: 20150616
  2. ZYLORIC [Suspect]
     Active Substance: ALLOPURINOL
     Dosage: 200 MG, 1X/DAY
     Route: 048
     Dates: end: 20150616
  3. SECTRAL [Concomitant]
     Active Substance: ACEBUTOLOL HYDROCHLORIDE
     Route: 048
  4. TAHOR [Concomitant]
     Active Substance: ATORVASTATIN CALCIUM
     Dosage: 40 MG, 1X/DAY
     Route: 048
  5. ACUILIX [Suspect]
     Active Substance: HYDROCHLOROTHIAZIDE\QUINAPRIL HYDROCHLORIDE
     Dosage: 20 MG/12.5 MG, 1X/DAY
     Route: 048
     Dates: end: 20150616
  6. LOXEN /00639802/ [Suspect]
     Active Substance: NICARDIPINE
     Dosage: 50 MG, 2X/DAY
     Route: 048
     Dates: end: 20150616

REACTIONS (7)
  - Haematochezia [Not Recovered/Not Resolved]
  - Cholestatic liver injury [Unknown]
  - Acute kidney injury [Fatal]
  - Anaemia [Not Recovered/Not Resolved]
  - Urinary tract infection bacterial [Unknown]
  - Gastric ulcer [Unknown]
  - Varices oesophageal [Unknown]

NARRATIVE: CASE EVENT DATE: 201506
